FAERS Safety Report 4939569-7 (Version None)
Quarter: 2006Q1

REPORT INFORMATION
  Report Type: 
  Country: None (occurrence: None)
  Receive Date: 20060310
  Receipt Date: 20060306
  Transmission Date: 20060701
  Serious: Yes (Hospitalization)
  Sender: FDA-Public Use
  Company Number: 2006AP01112

PATIENT
  Age: 66 Year
  Sex: Male

DRUGS (5)
  1. CASODEX [Suspect]
     Indication: PROSTATE CANCER
     Route: 048
     Dates: start: 20060208
  2. PLETAL [Concomitant]
     Route: 048
     Dates: start: 20050702
  3. ASPIRIN [Concomitant]
     Route: 048
     Dates: start: 20060124
  4. GASTER D [Concomitant]
     Route: 048
     Dates: start: 20060208
  5. INNOLET N [Concomitant]
     Route: 058

REACTIONS (1)
  - HYPOGLYCAEMIA [None]
